FAERS Safety Report 11722429 (Version 8)
Quarter: 2017Q1

REPORT INFORMATION
  Report Type: Spontaneous
  Country: US (occurrence: US)
  Receive Date: 20151111
  Receipt Date: 20170112
  Transmission Date: 20170428
  Serious: Yes (Congenital Anomaly, Other)
  Sender: FDA-Public Use
  Company Number: PHEH2015US022865

PATIENT
  Sex: Female
  Weight: 2.7 kg

DRUGS (4)
  1. ONDANSETRON DR REDDY [Suspect]
     Active Substance: ONDANSETRON
     Indication: FOETAL EXPOSURE DURING PREGNANCY
     Dosage: MOTHER DOSE: 8 MG, PRN
     Route: 064
  2. ONDANSETRON [Suspect]
     Active Substance: ONDANSETRON
     Indication: FOETAL EXPOSURE DURING PREGNANCY
     Route: 064
  3. ZOFRAN [Suspect]
     Active Substance: ONDANSETRON HYDROCHLORIDE
     Indication: FOETAL EXPOSURE DURING PREGNANCY
     Dosage: MOTHER DOSE: 08 MG, BID AND 04 MG TID
     Route: 064
  4. ONDANSETRON [Suspect]
     Active Substance: ONDANSETRON
     Indication: FOETAL EXPOSURE DURING PREGNANCY
     Dosage: MOTHER DOSE: 02MG/ML, AS NEEDED (PRN)
     Route: 064

REACTIONS (27)
  - Cyanosis neonatal [Unknown]
  - Emotional distress [Unknown]
  - Selective eating disorder [Unknown]
  - Cardiac septal defect [Unknown]
  - Injury [Unknown]
  - Constipation [Unknown]
  - Congenital anomaly [Unknown]
  - Hypoplastic left heart syndrome [Unknown]
  - Jaundice neonatal [Unknown]
  - Foetal exposure during pregnancy [Unknown]
  - Gastrooesophageal reflux disease [Unknown]
  - Ventricular septal defect [Unknown]
  - Heart disease congenital [Unknown]
  - Failure to thrive [Unknown]
  - Scar [Unknown]
  - Hypoplastic right heart syndrome [Unknown]
  - Transposition of the great vessels [Unknown]
  - Hyperbilirubinaemia [Unknown]
  - Premature baby [Unknown]
  - Pain [Unknown]
  - Anhedonia [Unknown]
  - Anxiety [Unknown]
  - Multiple congenital abnormalities [Unknown]
  - Meconium aspiration syndrome [Unknown]
  - Apnoea [Unknown]
  - Cardiac murmur [Unknown]
  - Dyspnoea [Unknown]
